FAERS Safety Report 5105782-1 (Version None)
Quarter: 2006Q3

REPORT INFORMATION
  Report Type: 
  Country: None (occurrence: None)
  Receive Date: 20060915
  Receipt Date: 20060821
  Transmission Date: 20061208
  Serious: Yes (Other)
  Sender: FDA-Public Use
  Company Number: JP-ROCHE-460602

PATIENT
  Age: 30 Year
  Sex: Female

DRUGS (1)
  1. PEGASYS [Suspect]
     Route: 058
     Dates: start: 20060728, end: 20060818

REACTIONS (2)
  - ERYTHEMA MULTIFORME [None]
  - URTICARIA [None]
